FAERS Safety Report 12774786 (Version 2)
Quarter: 2016Q4

REPORT INFORMATION
  Report Type: Report from Study
  Country: FR (occurrence: FR)
  Receive Date: 20160923
  Receipt Date: 20161107
  Transmission Date: 20170207
  Serious: Yes (Disabling, Other)
  Sender: FDA-Public Use
  Company Number: FR-PFIZER INC-2016428342

PATIENT
  Age: 39 Year
  Sex: Female
  Weight: 52 kg

DRUGS (3)
  1. PALBOCICLIB [Suspect]
     Active Substance: PALBOCICLIB
     Dosage: 75 MG, DAILY
     Dates: end: 20160928
  2. PALBOCICLIB [Suspect]
     Active Substance: PALBOCICLIB
     Indication: BREAST CANCER
     Dosage: 75 MG, DAILY
     Route: 048
     Dates: start: 20151126, end: 20160912
  3. FULVESTRANT [Concomitant]
     Active Substance: FULVESTRANT
     Dosage: UNK

REACTIONS (3)
  - Aphasia [Recovering/Resolving]
  - Facial paralysis [Recovering/Resolving]
  - Eyelid function disorder [Recovering/Resolving]

NARRATIVE: CASE EVENT DATE: 20160912
